FAERS Safety Report 6738340-3 (Version None)
Quarter: 2010Q2

REPORT INFORMATION
  Report Type: 
  Country: None (occurrence: None)
  Receive Date: 20100524
  Receipt Date: 20100512
  Transmission Date: 20101027
  Serious: Yes (Other)
  Sender: FDA-Public Use
  Company Number: TR-ELI_LILLY_AND_COMPANY-TR201005003849

PATIENT
  Sex: Female

DRUGS (3)
  1. HUMULIN R [Suspect]
     Indication: DIABETES MELLITUS
     Dosage: 10 U, 3/D (10 U/MORNING, 10 U/NOON AND 10 U/EVENING)
     Route: 058
     Dates: start: 20100212
  2. HUMULIN N [Suspect]
     Indication: DIABETES MELLITUS
     Dosage: 26 U, DAILY (1/D) (AT NIGHT)
     Route: 058
     Dates: start: 20100212
  3. VITAMINS [Concomitant]
     Indication: SUPPLEMENTATION THERAPY
     Dosage: UNK, 2/D
     Route: 065
     Dates: start: 20100212, end: 20100307

REACTIONS (2)
  - ABORTION SPONTANEOUS [None]
  - DRUG EXPOSURE DURING PREGNANCY [None]
